FAERS Safety Report 6110555-7 (Version None)
Quarter: 2009Q1

REPORT INFORMATION
  Report Type: 
  Country: None (occurrence: None)
  Receive Date: 20090310
  Receipt Date: 20090225
  Transmission Date: 20090719
  Serious: Yes (Hospitalization, Other)
  Sender: FDA-Public Use
  Company Number: PHHY2009FR06970

PATIENT
  Age: 64 Year
  Sex: Female

DRUGS (2)
  1. NISISCO [Suspect]
     Indication: HYPERTENSION
     Dosage: 160/25 MG
     Route: 048
     Dates: end: 20081124
  2. EFFEXOR [Suspect]
     Indication: DEPRESSION
     Dosage: 75 MG
     Route: 048
     Dates: end: 20081126

REACTIONS (7)
  - BALANCE DISORDER [None]
  - CONFUSIONAL STATE [None]
  - DIZZINESS [None]
  - FALL [None]
  - HYPOKALAEMIA [None]
  - HYPONATRAEMIA [None]
  - MALAISE [None]
